FAERS Safety Report 23599288 (Version 1)
Quarter: 2024Q1

REPORT INFORMATION
  Report Type: Spontaneous
  Country: US (occurrence: US)
  Receive Date: 20240306
  Receipt Date: 20240306
  Transmission Date: 20240409
  Serious: No
  Sender: FDA-Public Use
  Company Number: US-PTC THERAPEUTICS INC.-US-2023PTC000487

PATIENT
  Age: 9 Year
  Sex: Male

DRUGS (3)
  1. EMFLAZA [Suspect]
     Active Substance: DEFLAZACORT
     Indication: Product used for unknown indication
     Dosage: UNK
  2. TESTOSTERONE [Concomitant]
     Active Substance: TESTOSTERONE
     Indication: Product used for unknown indication
  3. ETEPLIRSEN [Concomitant]
     Active Substance: ETEPLIRSEN
     Indication: Duchenne muscular dystrophy
     Dosage: UNK
     Route: 042

REACTIONS (5)
  - Abnormal behaviour [Unknown]
  - Constipation [Unknown]
  - Rhinorrhoea [Unknown]
  - Lethargy [Unknown]
  - Anticipatory anxiety [Unknown]

NARRATIVE: CASE EVENT DATE: 20180927
